FAERS Safety Report 22654290 (Version 4)
Quarter: 2024Q4

REPORT INFORMATION
  Report Type: Report from Study
  Country: US (occurrence: US)
  Receive Date: 20230629
  Receipt Date: 20241212
  Transmission Date: 20250115
  Serious: No
  Sender: NOVARTIS
  Company Number: US-002147023-NVSC2023US147909

PATIENT
  Sex: Female

DRUGS (1)
  1. KESIMPTA [Suspect]
     Active Substance: OFATUMUMAB
     Indication: Product used for unknown indication
     Dosage: UNK
     Route: 065

REACTIONS (6)
  - Spinal pain [Unknown]
  - Pain in extremity [Unknown]
  - Back pain [Unknown]
  - Cystitis [Unknown]
  - Fungal infection [Unknown]
  - Uterine enlargement [Unknown]
